FAERS Safety Report 9598568 (Version 2)
Quarter: 2013Q4

REPORT INFORMATION
  Report Type: Spontaneous
  Country: US (occurrence: US)
  Receive Date: 20131004
  Receipt Date: 20131004
  Transmission Date: 20140711
  Serious: No
  Sender: FDA-Public Use
  Company Number: US-AMGEN-USASP2013022022

PATIENT
  Age: 41 Year
  Sex: Female

DRUGS (5)
  1. ENBREL [Suspect]
     Indication: PRODUCT USED FOR UNKNOWN INDICATION
     Dosage: 50 MG, QWK
     Route: 058
     Dates: start: 20120910, end: 20130318
  2. PROLIA [Concomitant]
     Dosage: 60 MG/ML
  3. MULTIVITAMINS, PLAIN [Concomitant]
     Dosage: UNK
  4. CALCIUM [Concomitant]
     Dosage: 500 UNK, UNK
  5. NUCYNTA [Concomitant]
     Dosage: 75 MG, UNK

REACTIONS (6)
  - Drug effect decreased [Unknown]
  - Arthralgia [Not Recovered/Not Resolved]
  - Gait disturbance [Not Recovered/Not Resolved]
  - Vomiting [Recovered/Resolved]
  - Pyrexia [Recovered/Resolved]
  - Fatigue [Not Recovered/Not Resolved]
